FAERS Safety Report 5950512-4 (Version None)
Quarter: 2008Q4

REPORT INFORMATION
  Report Type: 
  Country: None (occurrence: None)
  Receive Date: 20081112
  Receipt Date: 20081102
  Transmission Date: 20090506
  Serious: Yes (Hospitalization)
  Sender: FDA-Public Use
  Company Number: FR-WYE-H06650808

PATIENT
  Sex: Female

DRUGS (5)
  1. INIPOMP [Suspect]
     Route: 048
  2. ACTONEL [Concomitant]
     Dosage: UNKNOWN
  3. SEROPLEX [Suspect]
     Route: 048
     Dates: end: 20080414
  4. TEGRETOL [Suspect]
     Indication: EPILEPSY
     Route: 048
  5. VALSARTAN AND HYDROCHLOROTHIAZIDE [Suspect]
     Route: 048

REACTIONS (4)
  - APHASIA [None]
  - CONVULSION [None]
  - HYPONATRAEMIA [None]
  - TREMOR [None]
